FAERS Safety Report 14970232 (Version 1)
Quarter: 2018Q2

REPORT INFORMATION
  Report Type: Spontaneous
  Country: NO (occurrence: NO)
  Receive Date: 20180604
  Receipt Date: 20180604
  Transmission Date: 20180711
  Serious: Yes (Life-Threatening, Hospitalization)
  Sender: FDA-Public Use
  Company Number: NO-PFIZER INC-2018226130

PATIENT
  Age: 62 Year
  Sex: Male

DRUGS (1)
  1. SALAZOPYRIN EN [Suspect]
     Active Substance: SULFASALAZINE
     Indication: PSORIATIC ARTHROPATHY
     Dosage: 2000 MG, DAILY
     Route: 048
     Dates: start: 20180109, end: 20180302

REACTIONS (5)
  - Upper respiratory tract infection [Recovering/Resolving]
  - Tonsillitis [Recovering/Resolving]
  - Sepsis [Recovering/Resolving]
  - Product use in unapproved indication [Unknown]
  - Agranulocytosis [Recovering/Resolving]

NARRATIVE: CASE EVENT DATE: 20180109
